FAERS Safety Report 17789119 (Version 1)
Quarter: 2020Q2

REPORT INFORMATION
  Report Type: Report from Study
  Country: None (occurrence: TR)
  Receive Date: 20200515
  Receipt Date: 20200515
  Transmission Date: 20200714
  Serious: Yes (Death, Hospitalization)
  Sender: FDA-Public Use
  Company Number: TR-ABBVIE-19K-161-2852862-00

PATIENT
  Age: 45 Year
  Sex: Male
  Weight: 75 kg

DRUGS (1)
  1. DUODOPA [Suspect]
     Active Substance: CARBIDOPA\LEVODOPA
     Indication: PARKINSON^S DISEASE
     Dosage: MORNING DOSE: 7.00 ML CONTINUOUS DOSE: 5.10 EXTRA DOSE: 1.00 ML
     Route: 050
     Dates: start: 20181030

REACTIONS (5)
  - Vision blurred [Not Recovered/Not Resolved]
  - Cervical vertebral fracture [Recovered/Resolved]
  - Respiratory depression [Fatal]
  - Headache [Not Recovered/Not Resolved]
  - Fall [Recovered/Resolved]

NARRATIVE: CASE EVENT DATE: 202004
